FAERS Safety Report 5332516-8 (Version None)
Quarter: 2007Q2

REPORT INFORMATION
  Report Type: 
  Country: None (occurrence: None)
  Receive Date: 20070523
  Receipt Date: 20070521
  Transmission Date: 20071010
  Serious: Yes (Death)
  Sender: FDA-Public Use
  Company Number: DK-ASTRAZENECA-2007AC00922

PATIENT
  Age: 55 Year
  Sex: Female

DRUGS (1)
  1. PROPOFOL [Suspect]
     Indication: GENERAL ANAESTHESIA
     Route: 042

REACTIONS (4)
  - ACCIDENTAL OVERDOSE [None]
  - CARDIAC ARREST [None]
  - CEREBRAL INFARCTION [None]
  - DRUG ADMINISTRATION ERROR [None]
